FAERS Safety Report 10513185 (Version 4)
Quarter: 2014Q4

REPORT INFORMATION
  Report Type: Spontaneous
  Country: BR (occurrence: BR)
  Receive Date: 20141013
  Receipt Date: 20141202
  Transmission Date: 20150528
  Serious: Yes (Death, Hospitalization, Other)
  Sender: FDA-Public Use
  Company Number: BR-AMGEN-BRASP2014078511

PATIENT
  Age: 74 Year
  Sex: Male
  Weight: 73 kg

DRUGS (3)
  1. MAREVAN [Concomitant]
     Active Substance: WARFARIN SODIUM
     Indication: ARRHYTHMIA
     Dosage: UNK
     Dates: end: 2013
  2. PRADAXA [Concomitant]
     Active Substance: DABIGATRAN ETEXILATE MESYLATE
     Indication: ARRHYTHMIA
     Dosage: UNK
     Dates: start: 2013
  3. ENBREL [Suspect]
     Active Substance: ETANERCEPT
     Indication: PSORIATIC ARTHROPATHY
     Dosage: 25 MG, 2X/WEEK
     Route: 058
     Dates: start: 2010, end: 20140818

REACTIONS (15)
  - Extravasation [Unknown]
  - Pyrexia [Unknown]
  - Septic shock [Fatal]
  - Post procedural complication [Fatal]
  - Vomiting [Unknown]
  - Weight decreased [Unknown]
  - Nosocomial infection [Fatal]
  - Nausea [Unknown]
  - Somnolence [Not Recovered/Not Resolved]
  - Feeding disorder [Unknown]
  - Sepsis [Fatal]
  - Arthropathy [Unknown]
  - Confusional state [Not Recovered/Not Resolved]
  - Cellulitis [Fatal]
  - Urinary tract infection [Unknown]

NARRATIVE: CASE EVENT DATE: 2014
